FAERS Safety Report 5823010-6 (Version None)
Quarter: 2008Q3

REPORT INFORMATION
  Report Type: 
  Country: None (occurrence: None)
  Receive Date: 20080725
  Receipt Date: 20080723
  Transmission Date: 20090109
  Serious: Yes (Hospitalization)
  Sender: FDA-Public Use
  Company Number: B0530249A

PATIENT
  Sex: Male

DRUGS (15)
  1. ZEFIX [Suspect]
     Indication: HEPATIC CIRRHOSIS
     Dosage: 100MG PER DAY
     Route: 048
     Dates: start: 20050401, end: 20080108
  2. HEPSERA [Concomitant]
     Indication: HEPATIC CIRRHOSIS
     Dosage: 10MG SEVEN TIMES PER DAY
     Route: 048
     Dates: start: 20070309, end: 20080108
  3. ENTECAVIR [Concomitant]
     Indication: HEPATIC CIRRHOSIS
     Route: 048
     Dates: start: 20080109
  4. ALDACTONE [Concomitant]
     Route: 048
  5. KANAMYCIN [Concomitant]
     Route: 048
  6. LACTULOSE [Concomitant]
     Route: 048
  7. GASTER D [Concomitant]
     Route: 048
  8. URSO 250 [Concomitant]
     Indication: HEPATIC CIRRHOSIS
     Route: 048
  9. LIVACT [Concomitant]
     Route: 048
  10. GLAKAY [Concomitant]
     Route: 048
  11. ALENDRONATE SODIUM [Concomitant]
     Route: 048
  12. HEPAN ED [Concomitant]
     Route: 048
  13. FUROSEMIDE [Concomitant]
     Route: 048
  14. CINAL [Concomitant]
     Route: 048
  15. FERO-GRADUMET [Concomitant]
     Route: 048

REACTIONS (4)
  - ANAEMIA [None]
  - NEPHROSCLEROSIS [None]
  - OEDEMA [None]
  - RENAL IMPAIRMENT [None]
